FAERS Safety Report 4947946-3 (Version None)
Quarter: 2006Q1

REPORT INFORMATION
  Report Type: 
  Country: None (occurrence: None)
  Receive Date: 20060314
  Receipt Date: 20060301
  Transmission Date: 20060701
  Serious: Yes (Hospitalization)
  Sender: FDA-Public Use
  Company Number: 2006S1000047

PATIENT
  Age: 57 Year
  Sex: Female
  Weight: 83.9 kg

DRUGS (5)
  1. CUBICIN [Suspect]
     Indication: SEPTIC ARTHRITIS STAPHYLOCOCCAL
     Dosage: 6 MG/KG/Q24H;IV
     Route: 042
     Dates: start: 20060201
  2. ALLOPURINOL [Concomitant]
  3. MULTI-VITAMIN [Concomitant]
  4. AZITHROMYCIN [Concomitant]
  5. NORCO [Concomitant]

REACTIONS (3)
  - ACUTE MYOCARDIAL INFARCTION [None]
  - CREATININE RENAL CLEARANCE DECREASED [None]
  - PNEUMONIA [None]
